FAERS Safety Report 7800120-5 (Version None)
Quarter: 2011Q4

REPORT INFORMATION
  Report Type: 
  Country: None (occurrence: None)
  Receive Date: 20111006
  Receipt Date: 20110927
  Transmission Date: 20120403
  Serious: Yes (Other)
  Sender: FDA-Public Use
  Company Number: KZ-JNJFOC-20110912247

PATIENT
  Sex: Male
  Weight: 60 kg

DRUGS (1)
  1. TOPAMAX [Suspect]
     Indication: EPILEPSY
     Route: 048
     Dates: start: 20110510, end: 20110902

REACTIONS (2)
  - MENTAL DISORDER [None]
  - SLEEP DISORDER [None]
